FAERS Safety Report 7243594-3 (Version None)
Quarter: 2011Q1

REPORT INFORMATION
  Report Type: 
  Country: None (occurrence: None)
  Receive Date: 20110125
  Receipt Date: 20110113
  Transmission Date: 20110831
  Serious: Yes (Other)
  Sender: FDA-Public Use
  Company Number: PHHY2011FR05193

PATIENT
  Sex: Female

DRUGS (1)
  1. ACLASTA [Suspect]
     Indication: OSTEOPOROSIS
     Route: 042

REACTIONS (4)
  - OSTEONECROSIS OF JAW [None]
  - DEVICE FAILURE [None]
  - IMPLANT SITE PAIN [None]
  - PAIN IN JAW [None]
